FAERS Safety Report 4416322-4 (Version None)
Quarter: 2004Q3

REPORT INFORMATION
  Report Type: 
  Country: None (occurrence: None)
  Receive Date: 20040803
  Receipt Date: 20040727
  Transmission Date: 20050211
  Serious: Yes (Death)
  Sender: FDA-Public Use
  Company Number: NSADSS2002001668

PATIENT
  Age: 81 Year
  Sex: Male
  Weight: 68.0396 kg

DRUGS (13)
  1. REMICADE [Suspect]
     Indication: RHEUMATOID ARTHRITIS
     Dosage: 1 IN 1 AS NECESSARY, INTRAVENOUS DRIP
     Route: 041
     Dates: start: 20010313, end: 20010313
  2. REMICADE [Suspect]
     Indication: RHEUMATOID ARTHRITIS
     Dosage: 1 IN 1 AS NECESSARY, INTRAVENOUS DRIP
     Route: 041
     Dates: start: 20010503, end: 20010503
  3. PREDNISONE [Concomitant]
  4. COLCHICINE (COLCHICINE) [Concomitant]
  5. PLAQUENIL [Concomitant]
  6. ZOLOFT [Concomitant]
  7. FUROSEMIDE [Concomitant]
  8. BENZONATATE (BENZONATATE) [Concomitant]
  9. FLOMAX [Concomitant]
  10. CALCIUM-D (CALCIUM WITH VITAMIN D) [Concomitant]
  11. ASPIRIN [Concomitant]
  12. VITAMIN E [Concomitant]
  13. IMURAN [Concomitant]

REACTIONS (3)
  - DRUG ERUPTION [None]
  - INTERSTITIAL LUNG DISEASE [None]
  - THERAPY NON-RESPONDER [None]
